FAERS Safety Report 16626786 (Version 1)
Quarter: 2019Q3

REPORT INFORMATION
  Report Type: Spontaneous
  Country: US (occurrence: US)
  Receive Date: 20190724
  Receipt Date: 20190724
  Transmission Date: 20191004
  Serious: No
  Sender: FDA-Public Use
  Company Number: US-SA-2014SA056435

PATIENT
  Age: 83 Year
  Sex: Female
  Weight: 140 kg

DRUGS (2)
  1. LUXIQ [Concomitant]
     Active Substance: BETAMETHASONE VALERATE
     Dosage: UNK
  2. ASPERCREME NOS [Suspect]
     Active Substance: MENTHOL\TROLAMINE SALICYLATE
     Indication: PRURITUS
     Dosage: UNK UNK,UNK
     Route: 065

REACTIONS (1)
  - Therapeutic response unexpected [Unknown]
